FAERS Safety Report 11460945 (Version 1)
Quarter: 2015Q3

REPORT INFORMATION
  Report Type: Spontaneous
  Country: US (occurrence: US)
  Receive Date: 20150904
  Receipt Date: 20150904
  Transmission Date: 20151125
  Serious: No
  Sender: FDA-Public Use
  Company Number: PHEH2015US016882

PATIENT
  Sex: Female

DRUGS (1)
  1. FAMVIR [Suspect]
     Active Substance: FAMCICLOVIR
     Indication: PRODUCT USED FOR UNKNOWN INDICATION
     Route: 065

REACTIONS (12)
  - Drug intolerance [Unknown]
  - Lethargy [Unknown]
  - Herpes zoster [Unknown]
  - Cheilitis [Unknown]
  - Thinking abnormal [Unknown]
  - Neuralgia [Unknown]
  - Arthralgia [Unknown]
  - Constipation [Unknown]
  - Drug hypersensitivity [Unknown]
  - Rash [Recovered/Resolved]
  - Sleep disorder [Unknown]
  - Headache [Unknown]
